FAERS Safety Report 12846818 (Version 1)
Quarter: 2016Q4

REPORT INFORMATION
  Report Type: Spontaneous
  Country: US (occurrence: US)
  Receive Date: 20161013
  Receipt Date: 20161013
  Transmission Date: 20170207
  Serious: Yes (Other)
  Sender: FDA-Public Use
  Company Number: None

PATIENT
  Age: 75 Year
  Sex: Male
  Weight: 85.5 kg

DRUGS (1)
  1. TESTOSTERONE CYPIONATE. [Suspect]
     Active Substance: TESTOSTERONE CYPIONATE
     Indication: TESTICULAR FAILURE
     Dosage: ?          OTHER FREQUENCY:Q 3 WEEKS;?
     Route: 030
     Dates: start: 20160915, end: 20160915

REACTIONS (2)
  - Alopecia [None]
  - Malaise [None]

NARRATIVE: CASE EVENT DATE: 20161012
